FAERS Safety Report 5099150-9 (Version None)
Quarter: 2006Q3

REPORT INFORMATION
  Report Type: 
  Country: None (occurrence: None)
  Receive Date: 20060731
  Receipt Date: 20050912
  Transmission Date: 20061208
  Serious: Yes (Life-Threatening)
  Sender: FDA-Public Use
  Company Number: 217107

PATIENT

DRUGS (3)
  1. RITUXAN [Suspect]
     Indication: DIFFUSE LARGE B-CELL LYMPHOMA
     Dosage: 375 MG/M2, Q3W, UNK
     Dates: start: 20050601
  2. DOXORUBICIN HYDROCHLORIDE [Concomitant]
  3. DEMEROL [Concomitant]

REACTIONS (1)
  - INFUSION RELATED REACTION [None]
